FAERS Safety Report 12221604 (Version 2)
Quarter: 2016Q2

REPORT INFORMATION
  Report Type: Report from Study
  Country: IT (occurrence: IT)
  Receive Date: 20160330
  Receipt Date: 20160415
  Transmission Date: 20160815
  Serious: Yes (Hospitalization, Congenital Anomaly, Other)
  Sender: FDA-Public Use
  Company Number: IT-MDT-ADR-2016-00586

PATIENT
  Sex: Female
  Weight: 3 kg

DRUGS (2)
  1. GILENYA [Suspect]
     Active Substance: FINGOLIMOD HYDROCHLORIDE
     Indication: FOETAL EXPOSURE DURING PREGNANCY
     Dosage: 0.5 MG QD
     Route: 064
  2. BACLOFEN. [Suspect]
     Active Substance: BACLOFEN
     Indication: FOETAL EXPOSURE DURING PREGNANCY
     Dosage: 25 MG QD
     Route: 064

REACTIONS (12)
  - C-reactive protein increased [Recovering/Resolving]
  - Constipation [Recovering/Resolving]
  - Intestinal obstruction [Recovering/Resolving]
  - X-ray abnormal [Unknown]
  - Otorrhoea [Unknown]
  - Abdominal pain [Recovering/Resolving]
  - Vomiting [Recovering/Resolving]
  - Abdominal distension [Recovering/Resolving]
  - Congenital megacolon [Unknown]
  - Biopsy rectum abnormal [Unknown]
  - Faeces hard [Recovering/Resolving]
  - Right ventricular hypertrophy [Unknown]
